FAERS Safety Report 22614180 (Version 1)
Quarter: 2023Q2

REPORT INFORMATION
  Report Type: Report from Study
  Country: CO (occurrence: CO)
  Receive Date: 20230619
  Receipt Date: 20230619
  Transmission Date: 20230721
  Serious: Yes (Other)
  Sender: FDA-Public Use
  Company Number: CO-ALLERGAN-2232097US

PATIENT
  Age: 73 Year
  Sex: Female
  Weight: 58.01 kg

DRUGS (3)
  1. BOTOX [Suspect]
     Active Substance: ONABOTULINUMTOXINA
     Indication: Migraine
     Dosage: TIME INTERVAL: AS NECESSARY: 100 DOSAGE FORM
     Route: 030
     Dates: start: 20220923, end: 20220923
  2. GABAPENTIN [Concomitant]
     Active Substance: GABAPENTIN
     Indication: Product used for unknown indication
  3. Neurocil [Concomitant]
     Indication: Product used for unknown indication

REACTIONS (39)
  - Deafness [Not Recovered/Not Resolved]
  - Paranasal sinus neoplasm [Not Recovered/Not Resolved]
  - Procedural pain [Unknown]
  - Skin cancer [Not Recovered/Not Resolved]
  - Amnesia [Recovering/Resolving]
  - Swelling [Not Recovered/Not Resolved]
  - Mass [Not Recovered/Not Resolved]
  - Visual impairment [Not Recovered/Not Resolved]
  - Intraocular pressure increased [Not Recovered/Not Resolved]
  - Eye inflammation [Not Recovered/Not Resolved]
  - Blood cholesterol increased [Not Recovered/Not Resolved]
  - Pain in extremity [Not Recovered/Not Resolved]
  - Weight decreased [Not Recovered/Not Resolved]
  - Blood disorder [Not Recovered/Not Resolved]
  - Vein disorder [Not Recovered/Not Resolved]
  - Thermal burn [Not Recovered/Not Resolved]
  - Fibromyalgia [Not Recovered/Not Resolved]
  - Osteoporosis [Not Recovered/Not Resolved]
  - Eye pain [Not Recovered/Not Resolved]
  - Injection site pain [Not Recovered/Not Resolved]
  - Tooth extraction [Recovering/Resolving]
  - Procedural haemorrhage [Recovering/Resolving]
  - Toothache [Recovering/Resolving]
  - Pain [Recovering/Resolving]
  - Feeling abnormal [Recovering/Resolving]
  - Gingivitis [Recovering/Resolving]
  - Eye disorder [Not Recovered/Not Resolved]
  - Subcutaneous abscess [Not Recovered/Not Resolved]
  - Malaise [Not Recovered/Not Resolved]
  - Skin exfoliation [Not Recovered/Not Resolved]
  - Viral infection [Not Recovered/Not Resolved]
  - Rhinorrhoea [Not Recovered/Not Resolved]
  - Migraine [Not Recovered/Not Resolved]
  - Influenza like illness [Not Recovered/Not Resolved]
  - Arthritis [Not Recovered/Not Resolved]
  - Osteoarthritis [Not Recovered/Not Resolved]
  - Skin infection [Not Recovered/Not Resolved]
  - Rash [Not Recovered/Not Resolved]
  - Dermatitis [Recovering/Resolving]

NARRATIVE: CASE EVENT DATE: 20220927
